FAERS Safety Report 8791948 (Version 1)
Quarter: 2012Q4

REPORT INFORMATION
  Report Type: 
  Country: FR (occurrence: FR)
  Receive Date: 20120918
  Receipt Date: 20120918
  Transmission Date: 20130627
  Serious: Yes (Hospitalization)
  Sender: FDA-Public Use
  Company Number: FR-BRISTOL-MYERS SQUIBB COMPANY-16948994

PATIENT
  Age: 62 Year
  Sex: Female

DRUGS (9)
  1. APROVEL TABS 300 MG [Suspect]
  2. ATENOLOL [Suspect]
     Route: 048
  3. ALDACTONE [Suspect]
     Route: 048
  4. KARDEGIC [Suspect]
     Route: 048
  5. TAHOR [Suspect]
     Route: 048
  6. LEXOMIL [Suspect]
     Route: 048
  7. ATARAX [Suspect]
     Route: 048
  8. VICTOZA [Suspect]
     Dosage: 1 Df: 6mg/ml
     Route: 058
  9. APIDRA [Suspect]
     Route: 058

REACTIONS (1)
  - Leukocytoclastic vasculitis [Recovering/Resolving]
